FAERS Safety Report 10006266 (Version 2)
Quarter: 2014Q1

REPORT INFORMATION
  Report Type: Spontaneous
  Country: FR (occurrence: FR)
  Receive Date: 20140313
  Receipt Date: 20140328
  Transmission Date: 20141002
  Serious: Yes (Hospitalization)
  Sender: FDA-Public Use
  Company Number: FR-UCBSA-114220

PATIENT
  Age: 84 Year
  Sex: Male

DRUGS (13)
  1. VIMPAT [Suspect]
     Indication: CONVULSION
     Dosage: 200MG WITHIN 60 MINUTES
     Route: 042
     Dates: start: 20140221, end: 20140221
  2. VIMPAT [Suspect]
     Indication: CONVULSION
     Route: 048
     Dates: start: 20140221, end: 20140222
  3. KEPPRA [Suspect]
  4. AMLOR [Concomitant]
     Indication: HYPERTENSION
  5. ATACAND [Concomitant]
     Indication: HYPERTENSION
  6. IPERTEN [Concomitant]
     Indication: HYPERTENSION
  7. PLAVIX [Concomitant]
  8. NOVONORM [Concomitant]
     Indication: DIABETES MELLITUS
  9. LYRICA [Concomitant]
     Dosage: 150MG DAILY
  10. URBANYL [Concomitant]
     Indication: STATUS EPILEPTICUS
     Dosage: 30MG DAILY
     Dates: start: 20140217
  11. ZEBINIX [Concomitant]
     Indication: STATUS EPILEPTICUS
     Dosage: 400 MG DAILY
     Dates: start: 20140217
  12. ZEBINIX [Concomitant]
     Indication: STATUS EPILEPTICUS
     Dosage: 800MG DAILY
     Dates: start: 20140219
  13. ZEBINIX [Concomitant]
     Indication: STATUS EPILEPTICUS
     Dosage: 400MG DAILY
     Dates: start: 20140226

REACTIONS (4)
  - Ataxia [Recovered/Resolved]
  - Gait disturbance [Recovered/Resolved]
  - Balance disorder [Recovered/Resolved]
  - Status epilepticus [Recovered/Resolved]
